FAERS Safety Report 10697318 (Version 1)
Quarter: 2015Q1

REPORT INFORMATION
  Report Type: Spontaneous
  Country: US (occurrence: None)
  Receive Date: 20150107
  Receipt Date: 20150107
  Transmission Date: 20150721
  Serious: Yes (Disabling)
  Sender: FDA-Public Use
  Company Number: None

PATIENT
  Age: 54 Year
  Sex: Female
  Weight: 53.52 kg

DRUGS (2)
  1. GABAPENTIN. [Suspect]
     Active Substance: GABAPENTIN
     Indication: MIGRAINE
     Dosage: 300 THREE TIMES DIALY TAKEN BY MOUTH
     Route: 048
     Dates: start: 20121130, end: 20141110
  2. GABAPENTIN. [Suspect]
     Active Substance: GABAPENTIN
     Dosage: 300 THREE TIMES DIALY TAKEN BY MOUTH
     Route: 048
     Dates: start: 20121130, end: 20141110

REACTIONS (8)
  - Aphasia [None]
  - Migraine [None]
  - Neck pain [None]
  - Aortic valve incompetence [None]
  - Peripheral swelling [None]
  - Fall [None]
  - Impaired driving ability [None]
  - Disturbance in attention [None]

NARRATIVE: CASE EVENT DATE: 20141119
